FAERS Safety Report 26046194 (Version 1)
Quarter: 2025Q4

REPORT INFORMATION
  Report Type: Spontaneous
  Country: US (occurrence: None)
  Receive Date: 20251113
  Receipt Date: 20251113
  Transmission Date: 20260117
  Serious: Yes (Other)
  Sender: FDA-CTU
  Company Number: None

PATIENT
  Age: 49 Year
  Sex: Female

DRUGS (1)
  1. SERMORELIN ACETATE [Suspect]
     Active Substance: SERMORELIN ACETATE
     Route: 030
     Dates: start: 20250920, end: 20250920

REACTIONS (5)
  - Injection related reaction [None]
  - Anaphylactic reaction [None]
  - Generalised tonic-clonic seizure [None]
  - Decreased appetite [None]
  - Dizziness [None]

NARRATIVE: CASE EVENT DATE: 20250920
